FAERS Safety Report 13828069 (Version 2)
Quarter: 2017Q3

REPORT INFORMATION
  Report Type: Spontaneous
  Country: US (occurrence: US)
  Receive Date: 20170803
  Receipt Date: 20170809
  Transmission Date: 20171127
  Serious: Yes (Other)
  Sender: FDA-Public Use
  Company Number: US-BEH-2017082438

PATIENT
  Sex: Female
  Weight: 60.32 kg

DRUGS (16)
  1. ONDANSETRON [Concomitant]
     Active Substance: ONDANSETRON
  2. HYDROMORPHONE [Concomitant]
     Active Substance: HYDROMORPHONE
  3. LIDOCAINE/PRILOCAINE [Concomitant]
     Active Substance: LIDOCAINE\PRILOCAINE
  4. BERINERT [Suspect]
     Active Substance: HUMAN C1-ESTERASE INHIBITOR
     Dosage: 1000 UNK, UNK
     Route: 042
     Dates: start: 20160919
  5. NORMAL SALINE [Concomitant]
     Active Substance: SODIUM CHLORIDE
  6. BERINERT [Suspect]
     Active Substance: HUMAN C1-ESTERASE INHIBITOR
     Indication: HEREDITARY ANGIOEDEMA
     Dosage: 1000 IU, PRN
     Route: 042
     Dates: start: 20170403
  7. AMLODIPINE [Concomitant]
     Active Substance: AMLODIPINE BESYLATE
  8. BERINERT [Suspect]
     Active Substance: HUMAN C1-ESTERASE INHIBITOR
     Dosage: UNK
     Route: 042
  9. PHENERGAN [Concomitant]
     Active Substance: PROMETHAZINE HYDROCHLORIDE
  10. HYDROCHLOROTHIAZIDE. [Concomitant]
     Active Substance: HYDROCHLOROTHIAZIDE
  11. HEPARIN [Concomitant]
     Active Substance: HEPARIN SODIUM
  12. EPIPEN [Concomitant]
     Active Substance: EPINEPHRINE
  13. STERILE WATER [Concomitant]
     Active Substance: WATER
  14. SODIUM CHLORIDE. [Concomitant]
     Active Substance: SODIUM CHLORIDE
  15. DIPHENHYDRAMINE. [Concomitant]
     Active Substance: DIPHENHYDRAMINE
  16. CLONAZEPAM. [Concomitant]
     Active Substance: CLONAZEPAM

REACTIONS (1)
  - Drug ineffective [Unknown]
